FAERS Safety Report 17837233 (Version 1)
Quarter: 2020Q2

REPORT INFORMATION
  Report Type: Report from Study
  Country: US (occurrence: US)
  Receive Date: 20200529
  Receipt Date: 20200529
  Transmission Date: 20200714
  Serious: Yes (Other)
  Sender: FDA-Public Use
  Company Number: US-ROCHE-2605923

PATIENT
  Sex: Male

DRUGS (2)
  1. ALECENSA [Suspect]
     Active Substance: ALECTINIB HYDROCHLORIDE
     Indication: BRONCHIAL CARCINOMA
     Dosage: TAKE 3 CAPSULE(S) BY MOUTH IN THE MORNING AND TAKE
     Route: 048
  2. ALECENSA [Suspect]
     Active Substance: ALECTINIB HYDROCHLORIDE
     Indication: BONE CANCER
     Dosage: (3 TABLET IN AM AND 3 TABLET IN PM
     Route: 048
     Dates: start: 20190525

REACTIONS (1)
  - Lung carcinoma cell type unspecified stage IV [Unknown]
